FAERS Safety Report 24691080 (Version 1)
Quarter: 2024Q4

REPORT INFORMATION
  Report Type: Spontaneous
  Country: US (occurrence: None)
  Receive Date: 20241202
  Receipt Date: 20241202
  Transmission Date: 20250114
  Serious: Yes (Life-Threatening, Hospitalization, Other)
  Sender: Public
  Company Number: None

PATIENT
  Age: 38 Year
  Sex: Female
  Weight: 89.1 kg

DRUGS (1)
  1. MOUNJARO [Suspect]
     Active Substance: TIRZEPATIDE
     Indication: Weight decreased
     Dosage: 1 INJECTION ONCE A WEEK SUBCUTANEOUS
     Route: 058

REACTIONS (10)
  - Anxiety [None]
  - Fear [None]
  - Panic reaction [None]
  - Pain [None]
  - Dizziness [None]
  - Disturbance in attention [None]
  - Depression [None]
  - Dysarthria [None]
  - Antisocial behaviour [None]
  - Paranoia [None]

NARRATIVE: CASE EVENT DATE: 20240825
